FAERS Safety Report 6455454-6 (Version None)
Quarter: 2009Q4

REPORT INFORMATION
  Report Type: 
  Country: None (occurrence: None)
  Receive Date: 20091125
  Receipt Date: 20091015
  Transmission Date: 20100525
  Serious: No
  Sender: FDA-Public Use
  Company Number: US-ABBOTT-09P-163-0603692-00

PATIENT
  Sex: Male
  Weight: 80.812 kg

DRUGS (3)
  1. SIMCOR [Suspect]
     Indication: BLOOD CHOLESTEROL INCREASED
     Dosage: 500MG/20MG
     Dates: start: 20091012
  2. NAME UNKNOWN [Concomitant]
     Indication: DIABETES MELLITUS
  3. UNKNOWN NAME [Concomitant]
     Indication: HYPERTENSION

REACTIONS (1)
  - HEADACHE [None]
